FAERS Safety Report 9436419 (Version 1)
Quarter: 2013Q3

REPORT INFORMATION
  Report Type: Spontaneous
  Country: US (occurrence: US)
  Receive Date: 20130802
  Receipt Date: 20130802
  Transmission Date: 20140515
  Serious: No
  Sender: FDA-Public Use
  Company Number: US-BIOGENIDEC-2013BI071203

PATIENT
  Sex: Female

DRUGS (3)
  1. TYSABRI [Suspect]
     Indication: MULTIPLE SCLEROSIS
     Route: 042
     Dates: start: 20121119
  2. BENADRYL [Concomitant]
     Indication: PREMEDICATION
  3. FIORICET [Concomitant]
     Indication: PREMEDICATION

REACTIONS (1)
  - Adverse drug reaction [Recovered/Resolved]
